FAERS Safety Report 16231990 (Version 1)
Quarter: 2019Q2

REPORT INFORMATION
  Report Type: Spontaneous
  Country: GB (occurrence: GB)
  Receive Date: 20190424
  Receipt Date: 20190424
  Transmission Date: 20190711
  Serious: Yes (Other)
  Sender: FDA-Public Use
  Company Number: GB-SA-2019SA112334

PATIENT
  Age: 40 Year
  Sex: Female

DRUGS (3)
  1. LEMTRADA [Suspect]
     Active Substance: ALEMTUZUMAB
     Indication: RELAPSING-REMITTING MULTIPLE SCLEROSIS
     Dosage: FIRST CYCLE
     Route: 042
     Dates: start: 20161010
  2. LEMTRADA [Suspect]
     Active Substance: ALEMTUZUMAB
     Dosage: SECOND CYCLE
     Route: 042
     Dates: start: 20171024, end: 20171026
  3. INFLUENZA VACCINE [Suspect]
     Active Substance: INFLUENZA VIRUS VACCINE
     Indication: IMMUNISATION
     Route: 065
     Dates: start: 201810, end: 201810

REACTIONS (4)
  - Rash maculo-papular [Recovered/Resolved]
  - Malaise [Unknown]
  - Alopecia areata [Recovered/Resolved with Sequelae]
  - Joint swelling [Unknown]

NARRATIVE: CASE EVENT DATE: 201810
